FAERS Safety Report 18620621 (Version 1)
Quarter: 2020Q4

REPORT INFORMATION
  Report Type: Spontaneous
  Country: US (occurrence: US)
  Receive Date: 20201216
  Receipt Date: 20201216
  Transmission Date: 20210114
  Serious: Yes (Hospitalization)
  Sender: FDA-Public Use
  Company Number: US-STRIDES ARCOLAB LIMITED-2020SP010549

PATIENT
  Age: 31 Year
  Sex: Female

DRUGS (2)
  1. ALBUTEROL [SALBUTAMOL] [Suspect]
     Active Substance: ALBUTEROL
     Indication: BLOOD POTASSIUM DECREASED
     Dosage: UNK
     Route: 065
  2. ACETAZOLAMIDE. [Suspect]
     Active Substance: ACETAZOLAMIDE
     Indication: BLOOD POTASSIUM DECREASED
     Dosage: UNK
     Route: 065

REACTIONS (1)
  - Drug ineffective [Unknown]
